FAERS Safety Report 5648319-0 (Version None)
Quarter: 2008Q1

REPORT INFORMATION
  Report Type: 
  Country: None (occurrence: None)
  Receive Date: 20080304
  Receipt Date: 20080226
  Transmission Date: 20080703
  Serious: Yes (Other)
  Sender: FDA-Public Use
  Company Number: US-ROCHE-549802

PATIENT
  Sex: Female

DRUGS (1)
  1. BONIVA [Suspect]
     Indication: DRUG USE FOR UNKNOWN INDICATION
     Dosage: INDICATION REPORTED TO BE ^OSTEO.^  DOSE REPORTED AS 3 MG/3ML.
     Route: 042

REACTIONS (2)
  - BREAST CANCER RECURRENT [None]
  - CHEST DISCOMFORT [None]
